FAERS Safety Report 9288895 (Version 1)
Quarter: 2013Q2

REPORT INFORMATION
  Report Type: Spontaneous
  Country: US (occurrence: US)
  Receive Date: 20130514
  Receipt Date: 20130514
  Transmission Date: 20140414
  Serious: No
  Sender: FDA-Public Use
  Company Number: US-TEVA-404385USA

PATIENT
  Age: 59 Week
  Sex: Female

DRUGS (9)
  1. COPAXONE [Suspect]
  2. METFORMIN [Concomitant]
     Indication: DIABETES MELLITUS
  3. LYRICA [Concomitant]
     Indication: FIBROMYALGIA
  4. SINGULAIR [Concomitant]
  5. DULERA [Concomitant]
     Indication: ASTHMA
  6. PRAVASTATIN [Concomitant]
     Indication: BLOOD TRIGLYCERIDES INCREASED
  7. XANAX [Concomitant]
  8. SOMA [Concomitant]
     Dosage: QHS
  9. LAMICTAL [Concomitant]

REACTIONS (4)
  - Therapeutic response unexpected [Unknown]
  - Migraine [Unknown]
  - Incontinence [Unknown]
  - Tinnitus [Unknown]
